FAERS Safety Report 4467259-6 (Version None)
Quarter: 2004Q4

REPORT INFORMATION
  Report Type: 
  Country: None (occurrence: None)
  Receive Date: 20041001
  Receipt Date: 20040920
  Transmission Date: 20050328
  Serious: Yes (Hospitalization)
  Sender: FDA-Public Use
  Company Number: HQWYE023812NOV03

PATIENT
  Age: 70 Year
  Sex: Male
  Weight: 60.3 kg

DRUGS (8)
  1. MYLOTARG [Suspect]
     Indication: ACUTE MYELOID LEUKAEMIA
     Dosage: 14.9 MG 1 X PER 1 DAY, INTRAVENOUS
     Route: 042
     Dates: start: 20031103, end: 20031103
  2. CARDIZEM [Concomitant]
  3. MULTIVIT (MULTIVITAMINS) [Concomitant]
  4. ACETYLSALICYLIC ACID SRT [Concomitant]
  5. ALLOPURINOL [Concomitant]
  6. FLUCONAZOLE [Concomitant]
  7. ACYCLOVIR [Concomitant]
  8. PROTONIX [Concomitant]

REACTIONS (6)
  - ASCITES [None]
  - ATELECTASIS [None]
  - BLOOD CULTURE POSITIVE [None]
  - CLOSTRIDIAL INFECTION [None]
  - FEBRILE NEUTROPENIA [None]
  - PLEURAL EFFUSION [None]
